FAERS Safety Report 20134709 (Version 1)
Quarter: 2021Q4

REPORT INFORMATION
  Report Type: Spontaneous
  Country: FR (occurrence: FR)
  Receive Date: 20211201
  Receipt Date: 20211201
  Transmission Date: 20220303
  Serious: Yes (Hospitalization, Other)
  Sender: FDA-Public Use
  Company Number: None

PATIENT
  Age: 68 Year
  Sex: Male

DRUGS (2)
  1. PREDNISONE [Interacting]
     Active Substance: PREDNISONE
     Indication: Prostate cancer
     Dosage: 10 MILLIGRAM (5 MG MATIN ET 5 MG LE MIDI)
     Route: 048
     Dates: start: 202006
  2. XARELTO [Suspect]
     Active Substance: RIVAROXABAN
     Indication: Deep vein thrombosis
     Dosage: 2 DOSAGE FORM
     Route: 048
     Dates: start: 20210828, end: 20210924

REACTIONS (4)
  - Anaemia [Recovering/Resolving]
  - Haematuria [Recovering/Resolving]
  - Haematoma [Not Recovered/Not Resolved]
  - Drug interaction [Unknown]

NARRATIVE: CASE EVENT DATE: 20210801
